FAERS Safety Report 20490107 (Version 1)
Quarter: 2022Q1

REPORT INFORMATION
  Report Type: Spontaneous
  Country: US (occurrence: None)
  Receive Date: 20220217
  Receipt Date: 20220217
  Transmission Date: 20220424
  Serious: Yes (Other)
  Sender: FDA-Public Use
  Company Number: None

PATIENT
  Age: 83 Year
  Sex: Male

DRUGS (1)
  1. CAPECITABINE [Suspect]
     Active Substance: CAPECITABINE
     Indication: Colon cancer
     Dosage: FREQUENCY : TWICE A DAY;?
     Route: 048

REACTIONS (6)
  - Haemorrhage [None]
  - Arthropathy [None]
  - Hyperaesthesia [None]
  - Pain [None]
  - Fine motor skill dysfunction [None]
  - Iron deficiency [None]

NARRATIVE: CASE EVENT DATE: 20220126
